FAERS Safety Report 23704909 (Version 2)
Quarter: 2024Q2

REPORT INFORMATION
  Report Type: Spontaneous
  Country: CL (occurrence: CL)
  Receive Date: 20240404
  Receipt Date: 20240503
  Transmission Date: 20240716
  Serious: Yes (Other)
  Sender: FDA-Public Use
  Company Number: CL-ORGANON-O2310CHL002438

PATIENT
  Age: 27 Year
  Sex: Female

DRUGS (1)
  1. ETONOGESTREL [Suspect]
     Active Substance: ETONOGESTREL
     Dosage: 1 IMPLANT IN LEFT ARM, THIRD REPLACEMENT
     Route: 059
     Dates: start: 20220527

REACTIONS (18)
  - Pregnancy with implant contraceptive [Not Recovered/Not Resolved]
  - Unintended pregnancy [Not Recovered/Not Resolved]
  - Procedural pain [Recovered/Resolved]
  - Discomfort [Unknown]
  - Pain in extremity [Recovered/Resolved]
  - Heavy menstrual bleeding [Recovered/Resolved]
  - Hypomenorrhoea [Recovered/Resolved]
  - Implant site scar [Recovered/Resolved]
  - Headache [Recovered/Resolved]
  - Malaise [Recovered/Resolved]
  - Complication associated with device [Not Recovered/Not Resolved]
  - Device issue [Unknown]
  - Medical device site discomfort [Recovered/Resolved with Sequelae]
  - Menstruation delayed [Recovered/Resolved]
  - Menstrual disorder [Recovered/Resolved]
  - Vomiting [Recovered/Resolved]
  - Dyspepsia [Recovered/Resolved]
  - Wrong technique in product usage process [Unknown]

NARRATIVE: CASE EVENT DATE: 20220101
